FAERS Safety Report 15840421 (Version 2)
Quarter: 2019Q1

REPORT INFORMATION
  Report Type: Spontaneous
  Country: IT (occurrence: IT)
  Receive Date: 20190118
  Receipt Date: 20190220
  Transmission Date: 20190417
  Serious: Yes (Other)
  Sender: FDA-Public Use
  Company Number: IT-SUN PHARMACEUTICAL INDUSTRIES LTD-2018RR-196245

PATIENT
  Age: 40 Year
  Sex: Male

DRUGS (3)
  1. GENTALYN [Suspect]
     Active Substance: GENTAMICIN SULFATE
     Indication: PAIN IN EXTREMITY
     Dosage: AS NECESSARY
     Route: 061
     Dates: start: 20181211, end: 20181213
  2. BRUFEN 600 MG GRANULATO EFFERVESCENTE [Suspect]
     Active Substance: IBUPROFEN
     Indication: PAIN IN EXTREMITY
     Dosage: 600 MILLIGRAM, DAILY
     Route: 048
     Dates: start: 20181211, end: 20181213
  3. AZITHROMYCIN ANHYDROUS. [Suspect]
     Active Substance: AZITHROMYCIN ANHYDROUS
     Indication: PAIN IN EXTREMITY
     Dosage: 500 MILLIGRAM, DAILY
     Route: 048
     Dates: start: 20181211, end: 20181213

REACTIONS (3)
  - Periorbital swelling [Recovering/Resolving]
  - Eye swelling [Recovering/Resolving]
  - Hyperaemia [Recovering/Resolving]

NARRATIVE: CASE EVENT DATE: 20181214
